FAERS Safety Report 9276636 (Version 1)
Quarter: 2013Q2

REPORT INFORMATION
  Report Type: Spontaneous
  Country: ES (occurrence: ES)
  Receive Date: 20130507
  Receipt Date: 20130507
  Transmission Date: 20140414
  Serious: Yes (Death)
  Sender: FDA-Public Use
  Company Number: ES-ALEXION PHARMACEUTICALS INC.-A201300832

PATIENT
  Age: 28 Year
  Sex: Male

DRUGS (2)
  1. SOLIRIS 300MG [Suspect]
     Indication: AUTOIMMUNE HAEMOLYTIC ANAEMIA
     Dosage: 600 MG, SINGLE
     Route: 042
  2. SOLIRIS 300MG [Suspect]
     Indication: OFF LABEL USE

REACTIONS (1)
  - Haemolysis [Fatal]
